FAERS Safety Report 7647293-5 (Version None)
Quarter: 2011Q3

REPORT INFORMATION
  Report Type: 
  Country: None (occurrence: None)
  Receive Date: 20110801
  Receipt Date: 20110727
  Transmission Date: 20111222
  Serious: Yes (Other)
  Sender: FDA-Public Use
  Company Number: FR-PFIZER INC-2011170597

PATIENT
  Age: 37 Year
  Sex: Female

DRUGS (4)
  1. TRAMADOL HCL [Suspect]
     Dosage: 200 MG, 2X/DAY
     Route: 048
     Dates: end: 20110301
  2. LYRICA [Suspect]
     Dosage: 100 MG EVERY 2 TO 3 DAYS
     Route: 048
     Dates: end: 20110301
  3. LYRICA [Suspect]
     Dosage: 300 MG DAILY
     Route: 048
  4. LYRICA [Suspect]
     Dosage: 200 MG DAILY
     Route: 048

REACTIONS (6)
  - DIARRHOEA [None]
  - INFLUENZA LIKE ILLNESS [None]
  - WITHDRAWAL SYNDROME [None]
  - ANXIETY [None]
  - CRYING [None]
  - NAUSEA [None]
